FAERS Safety Report 6711337-5 (Version None)
Quarter: 2010Q2

REPORT INFORMATION
  Report Type: 
  Country: None (occurrence: None)
  Receive Date: 20100505
  Receipt Date: 20100426
  Transmission Date: 20101027
  Serious: Yes (Hospitalization)
  Sender: FDA-Public Use
  Company Number: FR-PFIZER INC-2010052146

PATIENT
  Age: 66 Year
  Sex: Male

DRUGS (9)
  1. XANAX [Suspect]
     Dosage: 0.5 MG, 1X/DAY
     Route: 048
     Dates: start: 20100303, end: 20100316
  2. ROCEPHIN [Suspect]
     Dosage: 3 G, 2X/DAY
     Route: 042
     Dates: start: 20100309, end: 20100402
  3. CONTRAMAL [Suspect]
     Dosage: 50 MG, 4X/DAY
     Route: 048
     Dates: start: 20100309, end: 20100315
  4. ZOLPIDEM [Suspect]
     Dosage: UNK
     Route: 048
     Dates: start: 20100222, end: 20100316
  5. FLAGYL [Suspect]
     Dosage: UNK
     Route: 048
     Dates: start: 20100204, end: 20100401
  6. ARAVA [Concomitant]
     Indication: RHEUMATOID ARTHRITIS
     Dosage: UNK
     Dates: start: 20070101
  7. RIVOTRIL [Concomitant]
     Dosage: UNK
     Dates: start: 20100209
  8. NEXIUM [Concomitant]
     Dosage: UNK
     Dates: start: 20100209
  9. SOLU-MEDROL [Concomitant]
     Dosage: UNK
     Dates: start: 20100209

REACTIONS (1)
  - THROMBOCYTOPENIA [None]
